FAERS Safety Report 10047510 (Version 2)
Quarter: 2014Q1

REPORT INFORMATION
  Report Type: Spontaneous
  Country: JP (occurrence: JP)
  Receive Date: 20140331
  Receipt Date: 20140331
  Transmission Date: 20141002
  Serious: Yes (Hospitalization, Other)
  Sender: FDA-Public Use
  Company Number: JP-JNJFOC-20140212680

PATIENT
  Age: 56 Year
  Sex: Male
  Weight: 71 kg

DRUGS (10)
  1. XARELTO [Suspect]
     Indication: ATRIAL FIBRILLATION
     Route: 048
     Dates: start: 20140110, end: 20140129
  2. XARELTO [Suspect]
     Indication: ATRIAL FIBRILLATION
     Route: 048
     Dates: start: 20140106, end: 20140109
  3. XARELTO [Suspect]
     Indication: CEREBROVASCULAR ACCIDENT PROPHYLAXIS
     Route: 048
     Dates: start: 20140106, end: 20140109
  4. XARELTO [Suspect]
     Indication: CEREBROVASCULAR ACCIDENT PROPHYLAXIS
     Route: 048
     Dates: start: 20140110, end: 20140129
  5. ALDACTONE A [Concomitant]
     Route: 048
  6. ARTIST [Concomitant]
     Route: 048
  7. DIART [Concomitant]
     Route: 048
  8. VASOLAN [Concomitant]
     Route: 048
  9. NOVASTAN [Concomitant]
     Route: 041
     Dates: start: 20140109, end: 20140113
  10. NOVASTAN [Concomitant]
     Route: 041
     Dates: start: 20140107, end: 20140108

REACTIONS (2)
  - Cerebral infarction [Recovering/Resolving]
  - Muscle haemorrhage [Recovered/Resolved]
